FAERS Safety Report 8142393-8 (Version None)
Quarter: 2012Q1

REPORT INFORMATION
  Report Type: 
  Country: None (occurrence: None)
  Receive Date: 20120103
  Receipt Date: 20111018
  Transmission Date: 20120608
  Serious: No
  Sender: FDA-Public Use
  Company Number: AE-2011-001289

PATIENT
  Age: 45 Year
  Sex: Male
  Weight: 77.1115 kg

DRUGS (9)
  1. AMBIEN [Concomitant]
  2. PEGASYS [Concomitant]
  3. NORCO [Concomitant]
  4. CLONAZEPAM [Concomitant]
  5. EFFEXOR [Concomitant]
  6. INCIVEK [Suspect]
     Dosage: 2250 MG (750 MG,1 IN 8 HR),ORAL
     Route: 048
     Dates: start: 20110827
  7. RIBASPHERE [Concomitant]
  8. TRUVADA [Concomitant]
  9. EDURANT (ANTIVIRALS FOR SYSTEMIC USE) [Concomitant]

REACTIONS (3)
  - PROCTALGIA [None]
  - HAEMORRHOIDS [None]
  - ANAL PRURITUS [None]
